FAERS Safety Report 13361150 (Version 2)
Quarter: 2017Q3

REPORT INFORMATION
  Report Type: Spontaneous
  Country: GB (occurrence: GB)
  Receive Date: 20170322
  Receipt Date: 20170728
  Transmission Date: 20171127
  Serious: Yes (Hospitalization, Other)
  Sender: FDA-Public Use
  Company Number: GB-MYLANLABS-2017M1017130

PATIENT

DRUGS (21)
  1. TRAMADOL. [Suspect]
     Active Substance: TRAMADOL
     Indication: PRODUCT USED FOR UNKNOWN INDICATION
     Dates: start: 20170302
  2. SALBUTAMOL [Concomitant]
     Active Substance: ALBUTEROL
     Route: 055
     Dates: start: 20170301
  3. TRICLOSAN. [Concomitant]
     Active Substance: TRICLOSAN
     Dosage: USE AS DIRECTED
     Dates: start: 20170222, end: 20170223
  4. PIOGLITAZONE. [Concomitant]
     Active Substance: PIOGLITAZONE
     Dates: start: 20160418
  5. SUDOCREM [Concomitant]
     Dosage: AS DIRECTED
     Dates: start: 20160418
  6. PARACETAMOL [Concomitant]
     Active Substance: ACETAMINOPHEN
     Dates: start: 20160418
  7. QUININE [Concomitant]
     Active Substance: QUININE
     Dosage: AT NIGHT
     Dates: start: 20160418
  8. DULOXETINE. [Concomitant]
     Active Substance: DULOXETINE
     Dates: start: 20160418
  9. CLOTRIMAZOLE. [Concomitant]
     Active Substance: CLOTRIMAZOLE
     Dosage: APPLY TO THE AFFECTED AREA 2 TO 3 TIMES A DAY FOR UP TO 7 DAYS
     Dates: start: 20170301
  10. EMLA [Concomitant]
     Active Substance: LIDOCAINE\PRILOCAINE
     Dates: start: 20160418
  11. TINZAPARIN [Concomitant]
     Active Substance: TINZAPARIN
     Dates: start: 20160418
  12. AMOXICILLIN. [Concomitant]
     Active Substance: AMOXICILLIN
     Dates: start: 20170222, end: 20170301
  13. BECLOMETASONE [Concomitant]
     Active Substance: BECLOMETHASONE DIPROPIONATE
     Dosage: 1 -2 PUFFS TWICE A DAY
     Dates: start: 20160418
  14. DIHYDROCODEINE [Concomitant]
     Active Substance: DIHYDROCODEINE
     Dosage: 4-6 HRLY
     Dates: start: 20160418
  15. NYSTATIN. [Concomitant]
     Active Substance: NYSTATIN
     Dosage: USING THE ORAL DISPENSER PROVIDED, PLACE 1ML IN...
     Dates: start: 20170213, end: 20170227
  16. WARFARIN SODIUM. [Suspect]
     Active Substance: WARFARIN SODIUM
     Indication: PRODUCT USED FOR UNKNOWN INDICATION
     Dosage: UNK
     Dates: start: 20170302
  17. CETIRIZINE [Concomitant]
     Active Substance: CETIRIZINE HYDROCHLORIDE
     Dates: start: 20160418
  18. SILDENAFIL. [Concomitant]
     Active Substance: SILDENAFIL
     Dosage: AS DIRECTED
     Dates: start: 20160418
  19. ATORVASTATIN [Concomitant]
     Active Substance: ATORVASTATIN
     Dates: start: 20160418
  20. FUSIDIC ACID [Concomitant]
     Active Substance: FUSIDIC ACID
     Dosage: APPLY 3-4 TIMES A DAY TO AFFECTED AREA
     Dates: start: 20170213, end: 20170214
  21. HYOSCINE BUTYLBROMIDE [Concomitant]
     Active Substance: BUTYLSCOPOLAMINE
     Dosage: ONE OR TWO TO BE TAKEN THREE TIMES A DAY
     Dates: start: 20160418

REACTIONS (4)
  - Nausea [Recovered/Resolved]
  - Malaise [Recovered/Resolved]
  - Lethargy [Recovered/Resolved]
  - Rash [Recovered/Resolved]

NARRATIVE: CASE EVENT DATE: 20170302
